FAERS Safety Report 12472003 (Version 1)
Quarter: 2016Q2

REPORT INFORMATION
  Report Type: Spontaneous
  Country: US (occurrence: None)
  Receive Date: 20160615
  Receipt Date: 20160615
  Transmission Date: 20160815
  Serious: Yes (Hospitalization)
  Sender: FDA-Public Use
  Company Number: None

PATIENT
  Age: 88 Year
  Sex: Male
  Weight: 83 kg

DRUGS (7)
  1. PROSCAR [Concomitant]
     Active Substance: FINASTERIDE
  2. LOPESSOR [Concomitant]
  3. APAP [Concomitant]
     Active Substance: ACETAMINOPHEN
  4. COUMADIN [Suspect]
     Active Substance: WARFARIN SODIUM
     Indication: ATRIAL FIBRILLATION
     Dosage: 2MG MWF PO CHRONIC
     Route: 048
  5. CARDURA [Concomitant]
     Active Substance: DOXAZOSIN MESYLATE
  6. COUMADIN [Suspect]
     Active Substance: WARFARIN SODIUM
     Indication: ATRIAL FIBRILLATION
     Dosage: 2.5MG TTHSS PO CHRONIC
     Route: 048
  7. SYNTHROID [Concomitant]
     Active Substance: LEVOTHYROXINE SODIUM

REACTIONS (6)
  - Gastrointestinal haemorrhage [None]
  - International normalised ratio increased [None]
  - Hypophagia [None]
  - Acute myocardial infarction [None]
  - Haematoma [None]
  - Haemoglobin abnormal [None]

NARRATIVE: CASE EVENT DATE: 20151206
